FAERS Safety Report 7672177-6 (Version None)
Quarter: 2011Q3

REPORT INFORMATION
  Report Type: 
  Country: None (occurrence: None)
  Receive Date: 20110809
  Receipt Date: 20110728
  Transmission Date: 20111222
  Serious: Yes (Other)
  Sender: FDA-Public Use
  Company Number: PHHY2011CA60424

PATIENT
  Sex: Male

DRUGS (6)
  1. ATACAND [Concomitant]
  2. SANDOSTATIN LAR [Suspect]
     Indication: CARCINOID TUMOUR
     Dosage: 20 MG EVERY 04 WEEKS
     Route: 030
     Dates: start: 20110331, end: 20110624
  3. CELEXA [Concomitant]
  4. FLORESTOR [Concomitant]
  5. OXYCONTIN [Concomitant]
  6. LEVOTHYROXINE SODIUM [Concomitant]

REACTIONS (4)
  - DEPRESSION [None]
  - DIARRHOEA [None]
  - MALAISE [None]
  - MUSCLE SPASMS [None]
